FAERS Safety Report 9712643 (Version 1)
Quarter: 2013Q4

REPORT INFORMATION
  Report Type: Spontaneous
  Country: GR (occurrence: GR)
  Receive Date: 20131126
  Receipt Date: 20131126
  Transmission Date: 20140711
  Serious: Yes (Hospitalization)
  Sender: FDA-Public Use
  Company Number: GR-ABBVIE-13P-066-1172270-00

PATIENT
  Age: 66 Year
  Sex: Male

DRUGS (12)
  1. DEPAKINE [Suspect]
     Indication: EPILEPSY
     Dates: start: 201202
  2. FRUMIL [Suspect]
     Indication: PRODUCT USED FOR UNKNOWN INDICATION
     Route: 048
     Dates: start: 2012, end: 201310
  3. FRUMIL [Suspect]
     Route: 048
     Dates: start: 201310
  4. ZYLORIC [Suspect]
     Indication: PRODUCT USED FOR UNKNOWN INDICATION
  5. NEXIUM [Suspect]
     Indication: PRODUCT USED FOR UNKNOWN INDICATION
  6. DIGOXIN [Suspect]
     Indication: PRODUCT USED FOR UNKNOWN INDICATION
  7. LADOSE [Suspect]
     Indication: PRODUCT USED FOR UNKNOWN INDICATION
  8. MYSOLINE [Suspect]
     Indication: PRODUCT USED FOR UNKNOWN INDICATION
  9. SINTROM [Suspect]
     Indication: PRODUCT USED FOR UNKNOWN INDICATION
  10. ALLOPURINOL [Suspect]
     Indication: PRODUCT USED FOR UNKNOWN INDICATION
  11. CORTISONE [Suspect]
     Indication: PRODUCT USED FOR UNKNOWN INDICATION
  12. AZATHIOPRINE [Suspect]
     Indication: PRODUCT USED FOR UNKNOWN INDICATION

REACTIONS (4)
  - Haematocrit decreased [Unknown]
  - Hypotension [Unknown]
  - Platelet count decreased [Unknown]
  - White blood cell count decreased [Unknown]
